FAERS Safety Report 5923149-0 (Version None)
Quarter: 2008Q4

REPORT INFORMATION
  Report Type: 
  Country: None (occurrence: None)
  Receive Date: 20081015
  Receipt Date: 20081008
  Transmission Date: 20090506
  Serious: Yes (Other)
  Sender: FDA-Public Use
  Company Number: 034710

PATIENT
  Age: 42 Year
  Sex: Female

DRUGS (2)
  1. DOXYCYCLINE HYCLATE [Suspect]
     Indication: PERIODONTAL OPERATION
     Dosage: TWO 100 MG CAPSULES (100 MG); 100 MG, QD
  2. CHLORHEXIDINE GLUCONATE [Concomitant]

REACTIONS (2)
  - CANDIDIASIS [None]
  - OESOPHAGEAL ULCER [None]
